FAERS Safety Report 6851102-1 (Version None)
Quarter: 2010Q3

REPORT INFORMATION
  Report Type: 
  Country: None (occurrence: None)
  Receive Date: 20100716
  Receipt Date: 20071027
  Transmission Date: 20110219
  Serious: No
  Sender: FDA-Public Use
  Company Number: US-PFIZER INC-2007091650

PATIENT
  Age: 61 Year
  Sex: Female
  Weight: 47.7 kg

DRUGS (11)
  1. CHANTIX [Suspect]
     Indication: SMOKING CESSATION THERAPY
     Dates: start: 20070601, end: 20071026
  2. PLAVIX [Concomitant]
  3. CYMBALTA [Concomitant]
  4. ANTIEPILEPTICS [Concomitant]
  5. COREG [Concomitant]
  6. AVAPRO [Concomitant]
  7. CARBAMAZEPINE [Concomitant]
  8. DIGITEK [Concomitant]
  9. OXYGEN [Concomitant]
  10. VICODIN [Concomitant]
  11. OXYCONTIN [Concomitant]

REACTIONS (2)
  - DYSPNOEA [None]
  - MALAISE [None]
